FAERS Safety Report 14834749 (Version 5)
Quarter: 2018Q4

REPORT INFORMATION
  Report Type: Report from Study
  Country: US (occurrence: US)
  Receive Date: 20180501
  Receipt Date: 20181029
  Transmission Date: 20190204
  Serious: Yes (Death, Hospitalization)
  Sender: FDA-Public Use
  Company Number: US-ACTELION-A-NJ2018-171250

PATIENT
  Age: 75 Year
  Sex: Female
  Weight: 74.83 kg

DRUGS (12)
  1. ALBUTEROL. [Concomitant]
     Active Substance: ALBUTEROL
     Dosage: UNK, Q6HRS
     Route: 055
  2. ASPIRIN 81 [Concomitant]
     Active Substance: ASPIRIN
     Dosage: 81 MG, QD
     Route: 048
  3. ZYRTEC [Concomitant]
     Active Substance: CETIRIZINE HYDROCHLORIDE
  4. LIPITOR [Concomitant]
     Active Substance: ATORVASTATIN CALCIUM
     Dosage: 20 MG, QPM
  5. ZOSYN [Concomitant]
     Active Substance: PIPERACILLIN SODIUM\TAZOBACTAM SODIUM
     Dosage: 4.5 G, UNK
     Route: 042
  6. ZYRTEC [Concomitant]
     Active Substance: CETIRIZINE HYDROCHLORIDE
  7. UPTRAVI [Suspect]
     Active Substance: SELEXIPAG
     Indication: PULMONARY ARTERIAL HYPERTENSION
     Dosage: 400 MCG, BID
     Route: 048
     Dates: start: 20180329, end: 20180429
  8. LASIX [Concomitant]
     Active Substance: FUROSEMIDE
     Dosage: 40 MG, BID
     Route: 048
  9. VITAMIN E [Concomitant]
     Active Substance: .ALPHA.-TOCOPHEROL
  10. FISH OIL [Concomitant]
     Active Substance: FISH OIL
  11. ADCIRCA [Concomitant]
     Active Substance: TADALAFIL
     Dosage: 20 MG, BID
  12. VITAMIN D3 [Concomitant]
     Active Substance: CHOLECALCIFEROL
     Dosage: 2000 U, QD
     Route: 048

REACTIONS (36)
  - Neoplasm malignant [Fatal]
  - Aspiration [Fatal]
  - Pulseless electrical activity [Unknown]
  - Clostridium colitis [Unknown]
  - Asthenia [Unknown]
  - Bedridden [Unknown]
  - Dyspnoea [Unknown]
  - Right ventricular dysfunction [Unknown]
  - Mental status changes [Recovering/Resolving]
  - Respiratory arrest [Fatal]
  - Loss of consciousness [Unknown]
  - Cardiac failure [Unknown]
  - Right ventricular dilatation [Unknown]
  - Disease complication [Fatal]
  - Delirium [Recovering/Resolving]
  - Oxygen saturation decreased [Unknown]
  - Hyperviscosity syndrome [Unknown]
  - Left ventricle outflow tract obstruction [Unknown]
  - Condition aggravated [Recovering/Resolving]
  - Peripheral swelling [Unknown]
  - Right ventricular failure [Fatal]
  - Anxiety [Unknown]
  - Hyperkalaemia [Unknown]
  - Syncope [Unknown]
  - Respiratory failure [Recovering/Resolving]
  - Waldenstrom^s macroglobulinaemia [Unknown]
  - Pleural effusion [Unknown]
  - B-cell lymphoma [Fatal]
  - Fatigue [Unknown]
  - Pulmonary hypertension [Fatal]
  - Urinary tract infection [Recovering/Resolving]
  - Tachypnoea [Unknown]
  - Tachycardia [Unknown]
  - Hypotension [Unknown]
  - Hypoxia [Unknown]
  - Abdominal pain [Unknown]

NARRATIVE: CASE EVENT DATE: 20180415
